FAERS Safety Report 6474300-8 (Version None)
Quarter: 2009Q4

REPORT INFORMATION
  Report Type: 
  Country: None (occurrence: None)
  Receive Date: 20091204
  Receipt Date: 20091202
  Transmission Date: 20100525
  Serious: Yes (Death)
  Sender: FDA-Public Use
  Company Number: PHEH2009US16843

PATIENT
  Sex: Male

DRUGS (2)
  1. EXJADE [Suspect]
     Indication: MYELODYSPLASTIC SYNDROME
     Dosage: 2000 MG PER DAY
     Route: 048
     Dates: start: 20090201
  2. EXJADE [Suspect]
     Indication: IRON OVERLOAD

REACTIONS (1)
  - ACUTE MYELOID LEUKAEMIA [None]
